FAERS Safety Report 11599070 (Version 1)
Quarter: 2015Q4

REPORT INFORMATION
  Report Type: Report from Study
  Country: US (occurrence: US)
  Receive Date: 20151006
  Receipt Date: 20151006
  Transmission Date: 20160304
  Serious: Yes (Hospitalization, Other)
  Sender: FDA-Public Use
  Company Number: US-ROCHE-1642385

PATIENT
  Age: 66 Year
  Sex: Female
  Weight: 121.6 kg

DRUGS (6)
  1. TRASTUZUMAB [Suspect]
     Active Substance: TRASTUZUMAB
     Dosage: OVER 30-60 MIN ON DAY 1, MAINTAINENCE DOSE 6 MG/KG, DATE OF LAST DOSE PRIOR TO SAE 12/JUN/2015
     Route: 042
  2. PERTUZUMAB [Suspect]
     Active Substance: PERTUZUMAB
     Indication: HER-2 POSITIVE BREAST CANCER
     Dosage: OVER 60 MIN ON DAY 1, LOADING DOSE
     Route: 042
     Dates: start: 20150501, end: 20150501
  3. TRASTUZUMAB [Suspect]
     Active Substance: TRASTUZUMAB
     Indication: HER-2 POSITIVE BREAST CANCER
     Dosage: OVER 90 MIN ON DAY 1, LOADING DOSE
     Route: 042
     Dates: start: 20150501
  4. CARBOPLATIN. [Suspect]
     Active Substance: CARBOPLATIN
     Indication: HER-2 POSITIVE BREAST CANCER
     Dosage: OVER 30-60 MINS ON DAY 1, DATE OF LAST DOSE PRIOR TO SAE 12/JUN/2015
     Route: 042
     Dates: start: 20150501
  5. DOCETAXEL. [Suspect]
     Active Substance: DOCETAXEL
     Indication: HER-2 POSITIVE BREAST CANCER
     Dosage: OVER 60 MIN ON DAY 1 (75 MG/M2), DATE OF LAST DOSE PRIOR TO SAE 12/JUN/2015
     Route: 042
     Dates: start: 20150501
  6. PERTUZUMAB [Suspect]
     Active Substance: PERTUZUMAB
     Dosage: OVER  30-60 MIN ON DAY 1, MAINTAINENCE DOSE, DATE OF LAST DOSE PRIOR TO SAE 12/JUN/2015
     Route: 042

REACTIONS (3)
  - Dehydration [Recovered/Resolved]
  - Muscular weakness [Recovered/Resolved]
  - Urinary tract infection [Recovered/Resolved]

NARRATIVE: CASE EVENT DATE: 20150622
